FAERS Safety Report 23040528 (Version 2)
Quarter: 2023Q4

REPORT INFORMATION
  Report Type: Other
  Country: US (occurrence: US)
  Receive Date: 20231006
  Receipt Date: 20231224
  Transmission Date: 20240110
  Serious: No
  Sender: FDA-Public Use
  Company Number: US-TRAVERE-2023TVT00472

PATIENT
  Age: 3 Year
  Sex: Male

DRUGS (5)
  1. CHOLBAM [Suspect]
     Active Substance: CHOLIC ACID
     Indication: Smith-Lemli-Opitz syndrome
     Dosage: 50 MG
     Route: 048
     Dates: start: 20230712
  2. CHOLBAM [Suspect]
     Active Substance: CHOLIC ACID
     Dosage: 50 MG
     Route: 048
     Dates: end: 20231128
  3. FAMOTIDINE [Concomitant]
     Active Substance: FAMOTIDINE
  4. CLOBAZAM [Concomitant]
     Active Substance: CLOBAZAM
  5. ZYRTEC [Concomitant]
     Active Substance: CETIRIZINE HYDROCHLORIDE

REACTIONS (3)
  - Faeces hard [Unknown]
  - Abdominal discomfort [None]
  - Drug intolerance [Unknown]
